FAERS Safety Report 10755474 (Version 1)
Quarter: 2015Q1

REPORT INFORMATION
  Report Type: Spontaneous
  Country: US (occurrence: None)
  Receive Date: 20150123
  Receipt Date: 20150123
  Transmission Date: 20150721
  Serious: Yes (Hospitalization)
  Sender: FDA-Public Use
  Company Number: TPA2011A07475

PATIENT
  Age: 79 Year
  Sex: Female
  Weight: 47.63 kg

DRUGS (6)
  1. BAYER ASPIRIN [Concomitant]
     Active Substance: ASPIRIN
  2. PREVACID SOLUTAB [Suspect]
     Active Substance: LANSOPRAZOLE
     Indication: GASTROOESOPHAGEAL REFLUX DISEASE
     Route: 048
     Dates: start: 20081104, end: 201110
  3. ATELVIA [Concomitant]
     Active Substance: RISEDRONATE SODIUM
  4. CALCIUM CITRATE [Concomitant]
     Active Substance: CALCIUM CITRATE
  5. CENTRUM SILVER [Concomitant]
     Active Substance: VITAMINS
  6. PREMARIN [Concomitant]
     Active Substance: ESTROGENS, CONJUGATED

REACTIONS (2)
  - Gastrointestinal infection [None]
  - Pancreatitis [None]

NARRATIVE: CASE EVENT DATE: 201110
